FAERS Safety Report 8285830 (Version 4)
Quarter: 2013Q4

REPORT INFORMATION
  Report Type: Report from Study
  Country: AT (occurrence: AT)
  Receive Date: 20111213
  Receipt Date: 20131224
  Transmission Date: 20140711
  Serious: Yes (Life-Threatening, Hospitalization)
  Sender: FDA-Public Use
  Company Number: PHHO2011AT03646

PATIENT
  Sex: 0

DRUGS (4)
  1. MYFORTIC [Suspect]
     Indication: RENAL TRANSPLANT
     Dosage: 360 MG, BID [PRN]
     Route: 048
     Dates: start: 20110222
  2. PROGRAF [Suspect]
     Indication: RENAL TRANSPLANT
     Dosage: PRN BID
     Route: 048
     Dates: start: 20110222
  3. APREDNISLON [Suspect]
     Indication: RENAL TRANSPLANT
     Dosage: PRN BID
     Route: 048
     Dates: start: 20110222
  4. PANTOLOC [Concomitant]
     Indication: PROPHYLAXIS
     Dosage: 400 MG, TID
     Route: 048
     Dates: start: 20110224

REACTIONS (2)
  - Gastrointestinal haemorrhage [Recovered/Resolved]
  - Pneumomediastinum [Recovered/Resolved]
